FAERS Safety Report 26054414 (Version 2)
Quarter: 2025Q4

REPORT INFORMATION
  Report Type: Spontaneous
  Country: US (occurrence: None)
  Receive Date: 20251117
  Receipt Date: 20251203
  Transmission Date: 20260117
  Serious: No
  Sender: INCYTE
  Company Number: US-INCYTE CORPORATION-2025IN012348

PATIENT

DRUGS (9)
  1. JAKAFI [Suspect]
     Active Substance: RUXOLITINIB
     Indication: Essential thrombocythaemia
     Dosage: 15 MILLIGRAM, BID
  2. JAKAFI [Suspect]
     Active Substance: RUXOLITINIB
     Dosage: 10 MILLIGRAM
  3. JAKAFI [Suspect]
     Active Substance: RUXOLITINIB
     Dosage: UNK (TAKING A HIGHER DOSE WHILE WAITING FOR THE 10MG)
  4. XOLAIR [Suspect]
     Active Substance: OMALIZUMAB
     Indication: Product used for unknown indication
     Dosage: UNK
     Route: 065
  5. SODIUM CHLORIDE [Concomitant]
     Active Substance: SODIUM CHLORIDE
     Indication: Product used for unknown indication
     Dosage: 250 MILLILITER (BAG)
     Route: 065
  6. EPINEPHRINE [Concomitant]
     Active Substance: EPINEPHRINE
     Indication: Product used for unknown indication
     Dosage: UNK, AUTO-INJ
     Route: 065
  7. HEPARIN [Concomitant]
     Active Substance: HEPARIN SODIUM
     Indication: Product used for unknown indication
     Dosage: 5 MILLIGRAM
     Route: 065
  8. MAGNESIUM SULFATE [Concomitant]
     Active Substance: MAGNESIUM SULFATE
     Indication: Product used for unknown indication
     Dosage: UNK
     Route: 065
  9. GAMMAGARD [Concomitant]
     Active Substance: HUMAN IMMUNOGLOBULIN G
     Indication: Product used for unknown indication
     Dosage: UNK
     Route: 065

REACTIONS (7)
  - Off label use [Unknown]
  - Rhinitis [Recovering/Resolving]
  - Dyspnoea [Recovering/Resolving]
  - Headache [Unknown]
  - Malaise [Unknown]
  - Illness [Unknown]
  - Product availability issue [Unknown]
